FAERS Safety Report 23649946 (Version 1)
Quarter: 2024Q1

REPORT INFORMATION
  Report Type: Spontaneous
  Country: US (occurrence: None)
  Receive Date: 20240319
  Receipt Date: 20240319
  Transmission Date: 20240410
  Serious: No
  Sender: FDA-Public Use
  Company Number: US-ROCHE-3465851

PATIENT
  Sex: Male

DRUGS (1)
  1. ERIVEDGE [Suspect]
     Active Substance: VISMODEGIB
     Indication: Ill-defined disorder
     Route: 048
     Dates: start: 202310

REACTIONS (2)
  - Myalgia [Unknown]
  - Gastrointestinal disorder [Unknown]
